FAERS Safety Report 6682596-2 (Version None)
Quarter: 2010Q2

REPORT INFORMATION
  Report Type: 
  Country: None (occurrence: None)
  Receive Date: 20100415
  Receipt Date: 20100402
  Transmission Date: 20101027
  Serious: Yes (Life-Threatening, Hospitalization)
  Sender: FDA-Public Use
  Company Number: JP-SANOFI-AVENTIS-200813505JP

PATIENT
  Age: 76 Year
  Sex: Male
  Weight: 59 kg

DRUGS (8)
  1. LASIX [Suspect]
     Dosage: DOSE UNIT: 20 MG
     Route: 048
     Dates: start: 20080923, end: 20080929
  2. NU-LOTAN [Suspect]
     Indication: HYPERTENSION
     Dosage: DOSE UNIT: 50 MG
     Route: 048
     Dates: start: 20080918, end: 20080922
  3. NU-LOTAN [Suspect]
     Dosage: DOSE UNIT: 50 MG
     Route: 048
     Dates: start: 20080923, end: 20080926
  4. LIPITOR [Concomitant]
     Dosage: DOSE AS USED: 1 TABLET/DAY
     Route: 048
     Dates: start: 20080918, end: 20080926
  5. ALLOPURINOL [Concomitant]
     Dosage: DOSE AS USED: 1 TABLET/DAY
     Route: 048
     Dates: end: 20081005
  6. NORVASC [Concomitant]
     Indication: HYPERTENSION
     Dosage: DOSE UNIT: 5 MG
     Route: 048
     Dates: end: 20081005
  7. KREMEZIN [Concomitant]
     Dosage: DOSE UNIT: 2 G
     Route: 048
     Dates: start: 20080918, end: 20081002
  8. FLUITRAN [Concomitant]
     Dosage: DOSE AS USED: 0.5 TABLET/DAY
     Route: 048
     Dates: end: 20080922

REACTIONS (1)
  - TOXIC EPIDERMAL NECROLYSIS [None]
